FAERS Safety Report 18385655 (Version 1)
Quarter: 2020Q4

REPORT INFORMATION
  Report Type: Spontaneous
  Country: GB (occurrence: GB)
  Receive Date: 20201015
  Receipt Date: 20201015
  Transmission Date: 20210114
  Serious: Yes (Other)
  Sender: FDA-Public Use
  Company Number: GB-ACCORD-205075

PATIENT
  Age: 31 Year
  Sex: Male

DRUGS (1)
  1. AMITRIPTYLINE [Suspect]
     Active Substance: AMITRIPTYLINE
     Indication: TENSION HEADACHE
     Route: 048
     Dates: start: 20200919

REACTIONS (3)
  - Poor quality sleep [Recovering/Resolving]
  - Restlessness [Recovering/Resolving]
  - Tremor [Recovering/Resolving]

NARRATIVE: CASE EVENT DATE: 20200919
